FAERS Safety Report 18905861 (Version 1)
Quarter: 2021Q1

REPORT INFORMATION
  Report Type: Spontaneous
  Country: US (occurrence: US)
  Receive Date: 20210217
  Receipt Date: 20210217
  Transmission Date: 20210420
  Serious: No
  Sender: FDA-Public Use
  Company Number: US-OTSUKA-2020_020100

PATIENT
  Age: 2 Year
  Sex: Female
  Weight: 12.8 kg

DRUGS (11)
  1. CLOFARABINE. [Suspect]
     Active Substance: CLOFARABINE
     Indication: BONE MARROW TRANSPLANT
  2. BUSULFAN. [Suspect]
     Active Substance: BUSULFAN
     Indication: MUCOPOLYSACCHARIDOSIS I
  3. MYCOPHENOLATE MOFETIL. [Concomitant]
     Active Substance: MYCOPHENOLATE MOFETIL
     Indication: PROPHYLAXIS AGAINST GRAFT VERSUS HOST DISEASE
     Dosage: UNK
     Route: 065
  4. ANTITHYMOCYTE IMMUNOGLOBULIN (RABBIT) [Suspect]
     Active Substance: LAPINE T-LYMPHOCYTE IMMUNE GLOBULIN
     Indication: ALLOGENIC STEM CELL TRANSPLANTATION
     Dosage: UNK (?4 TO ?1 DAYS)
     Route: 065
  5. ANTITHYMOCYTE IMMUNOGLOBULIN (RABBIT) [Suspect]
     Active Substance: LAPINE T-LYMPHOCYTE IMMUNE GLOBULIN
     Indication: BONE MARROW TRANSPLANT
  6. BUSULFAN. [Suspect]
     Active Substance: BUSULFAN
     Indication: ALLOGENIC STEM CELL TRANSPLANTATION
     Dosage: 15.1 MG/KG, EVERY 6 HOUR (DAY ?9 TO ?7)
     Route: 042
  7. FLUDARABINE [Suspect]
     Active Substance: FLUDARABINE PHOSPHATE
     Indication: BONE MARROW TRANSPLANT
  8. CLOFARABINE. [Suspect]
     Active Substance: CLOFARABINE
     Indication: ALLOGENIC STEM CELL TRANSPLANTATION
     Dosage: UNK (?5 TO ?2 DAYS)
     Route: 065
  9. CYCLOSPORINE. [Concomitant]
     Active Substance: CYCLOSPORINE
     Indication: PROPHYLAXIS AGAINST GRAFT VERSUS HOST DISEASE
     Dosage: UNK
     Route: 065
  10. BUSULFAN. [Suspect]
     Active Substance: BUSULFAN
     Indication: BONE MARROW TRANSPLANT
  11. FLUDARABINE [Suspect]
     Active Substance: FLUDARABINE PHOSPHATE
     Indication: ALLOGENIC STEM CELL TRANSPLANTATION
     Dosage: UNK (DAY ?5 TO ?2)
     Route: 065

REACTIONS (2)
  - Mucosal inflammation [Recovered/Resolved]
  - Product use in unapproved indication [Unknown]
